FAERS Safety Report 8222423-5 (Version None)
Quarter: 2012Q1

REPORT INFORMATION
  Report Type: 
  Country: None (occurrence: None)
  Receive Date: 20120320
  Receipt Date: 20120315
  Transmission Date: 20120608
  Serious: Yes (Hospitalization, Other)
  Sender: FDA-Public Use
  Company Number: US-PFIZER INC-2011243993

PATIENT
  Sex: Female

DRUGS (4)
  1. HYDROMORPHONE [Concomitant]
     Indication: PAIN
     Dosage: UNK
     Dates: start: 20060701, end: 20101201
  2. SUBOXONE [Concomitant]
     Indication: DRUG DEPENDENCE
     Dosage: UNK
     Dates: start: 20070901, end: 20101101
  3. CHANTIX [Suspect]
     Indication: SMOKING CESSATION THERAPY
     Dosage: 1 MG, UNK
     Dates: start: 20090715, end: 20090901
  4. CIPROFLOXACIN [Concomitant]
     Indication: ANTIBIOTIC THERAPY
     Dosage: UNK
     Dates: start: 20080401, end: 20100901

REACTIONS (8)
  - COMA [None]
  - METABOLIC ENCEPHALOPATHY [None]
  - METABOLIC ACIDOSIS [None]
  - DEPRESSION [None]
  - SUICIDE ATTEMPT [None]
  - AGGRESSION [None]
  - ABNORMAL BEHAVIOUR [None]
  - ANXIETY [None]
